FAERS Safety Report 12654450 (Version 1)
Quarter: 2016Q3

REPORT INFORMATION
  Report Type: Report from Study
  Country: CN (occurrence: CN)
  Receive Date: 20160816
  Receipt Date: 20160816
  Transmission Date: 20161109
  Serious: Yes (Death)
  Sender: FDA-Public Use
  Company Number: CN-ROCHE-1813524

PATIENT
  Sex: Female
  Weight: 40 kg

DRUGS (1)
  1. AVASTIN [Suspect]
     Active Substance: BEVACIZUMAB
     Indication: COLON CANCER
     Route: 041
     Dates: start: 20150914

REACTIONS (2)
  - Metastasis [Fatal]
  - Gastrointestinal wall thinning [Fatal]
